FAERS Safety Report 6070774-5 (Version None)
Quarter: 2009Q1

REPORT INFORMATION
  Report Type: 
  Country: None (occurrence: None)
  Receive Date: 20090209
  Receipt Date: 20081006
  Transmission Date: 20090719
  Serious: No
  Sender: FDA-Public Use
  Company Number: A0591297A

PATIENT
  Age: 30 Year
  Sex: Female

DRUGS (3)
  1. PAROXETINE HCL [Suspect]
     Indication: PANIC DISORDER
     Route: 048
     Dates: start: 20050301, end: 20050401
  2. PAXIL CR [Suspect]
     Indication: PANIC DISORDER
     Route: 048
     Dates: start: 20040301, end: 20050301
  3. BUPROPION HYDROCHLORIDE [Suspect]
     Indication: PANIC ATTACK
     Dosage: 300MG PER DAY
     Route: 048
     Dates: start: 20060101, end: 20060101

REACTIONS (3)
  - DRUG INEFFECTIVE [None]
  - FEELING ABNORMAL [None]
  - INFLUENZA [None]
